FAERS Safety Report 4825343-9 (Version None)
Quarter: 2005Q4

REPORT INFORMATION
  Report Type: 
  Country: None (occurrence: None)
  Receive Date: 20051111
  Receipt Date: 20051031
  Transmission Date: 20060501
  Serious: Yes (Life-Threatening, Hospitalization)
  Sender: FDA-Public Use
  Company Number: JP-JNJFOC-20050205999

PATIENT
  Sex: Male

DRUGS (4)
  1. RISPERDAL [Suspect]
     Route: 048
  2. HALOPERIDOL [Suspect]
     Route: 042
  3. MIDAZOLAM [Concomitant]
     Indication: SEDATION
     Route: 042
  4. PROPOFOL [Concomitant]
     Indication: SEDATION
     Route: 042

REACTIONS (3)
  - BRADYCARDIA [None]
  - DRUG ADMINISTRATION ERROR [None]
  - SINUS ARREST [None]
